FAERS Safety Report 7575239-7 (Version None)
Quarter: 2011Q2

REPORT INFORMATION
  Report Type: 
  Country: None (occurrence: None)
  Receive Date: 20110627
  Receipt Date: 20101209
  Transmission Date: 20111010
  Serious: Yes (Other)
  Sender: FDA-Public Use
  Company Number: US-BAYER-200941076NA

PATIENT
  Age: 57 Year
  Sex: Male
  Weight: 117.91 kg

DRUGS (21)
  1. NORVASC [Concomitant]
     Indication: PRODUCT USED FOR UNKNOWN INDICATION
     Dosage: UNK
     Route: 048
     Dates: start: 20040101
  2. LASIX [Concomitant]
     Route: 048
  3. HEPARIN [Concomitant]
     Indication: AORTIC VALVE REPLACEMENT
  4. LOPRESSOR [Concomitant]
     Indication: CORONARY ARTERY BYPASS
     Dosage: UNK
     Route: 042
     Dates: start: 20031211
  5. ASPIRIN [Concomitant]
     Indication: PRODUCT USED FOR UNKNOWN INDICATION
     Route: 048
  6. LASIX [Concomitant]
     Indication: AORTIC VALVE REPLACEMENT
  7. CELEBREX [Concomitant]
     Indication: PRODUCT USED FOR UNKNOWN INDICATION
     Dosage: UNK
     Dates: start: 20010101
  8. LOPRESSOR [Concomitant]
     Indication: AORTIC VALVE REPLACEMENT
  9. MANNITOL [Concomitant]
     Indication: CORONARY ARTERY BYPASS
     Dosage: UNK
     Route: 042
     Dates: start: 20031211
  10. HYDROCODONE [Concomitant]
     Indication: BACK PAIN
     Dosage: UNK
     Route: 048
     Dates: start: 19970101
  11. SOMA [Concomitant]
     Indication: BACK PAIN
     Dosage: UNK
     Route: 048
     Dates: start: 19970101
  12. ZOCOR [Concomitant]
     Indication: PRODUCT USED FOR UNKNOWN INDICATION
     Route: 048
  13. PROTONIX [Concomitant]
     Dosage: UNK
     Route: 048
  14. MANNITOL [Concomitant]
     Indication: AORTIC VALVE REPLACEMENT
  15. TOPROL-XL [Concomitant]
     Indication: PRODUCT USED FOR UNKNOWN INDICATION
     Dosage: UNK
     Route: 048
     Dates: start: 19980101
  16. TRASYLOL [Suspect]
     Indication: CORONARY ARTERY BYPASS
     Dosage: UNK
     Route: 042
     Dates: start: 20031211
  17. LASIX [Concomitant]
     Indication: CORONARY ARTERY BYPASS
     Dosage: UNK
     Route: 042
     Dates: start: 20031211
  18. HEPARIN [Concomitant]
     Indication: CORONARY ARTERY BYPASS
     Dosage: UNK
     Route: 042
     Dates: start: 20031211
  19. VANCOMYCIN [Concomitant]
     Indication: AORTIC VALVE REPLACEMENT
  20. TRASYLOL [Suspect]
     Indication: AORTIC VALVE REPLACEMENT
  21. VANCOMYCIN [Concomitant]
     Indication: CORONARY ARTERY BYPASS
     Dosage: 1 G, UNK
     Route: 042
     Dates: start: 20031211, end: 20031211

REACTIONS (14)
  - RENAL IMPAIRMENT [None]
  - RENAL INJURY [None]
  - FEAR [None]
  - EMOTIONAL DISTRESS [None]
  - BACK PAIN [None]
  - ANXIETY [None]
  - INJURY [None]
  - MULTI-ORGAN FAILURE [None]
  - ANHEDONIA [None]
  - DEPRESSION [None]
  - RENAL FAILURE [None]
  - UNEVALUABLE EVENT [None]
  - PAIN [None]
  - STRESS [None]
